FAERS Safety Report 11552150 (Version 1)
Quarter: 2015Q3

REPORT INFORMATION
  Report Type: Spontaneous
  Country: RO (occurrence: RO)
  Receive Date: 20150925
  Receipt Date: 20150925
  Transmission Date: 20151125
  Serious: Yes (Death)
  Sender: FDA-Public Use
  Company Number: RO-ABBVIE-15K-135-1467007-00

PATIENT
  Age: 75 Year
  Sex: Female
  Weight: 85 kg

DRUGS (1)
  1. HUMIRA [Suspect]
     Active Substance: ADALIMUMAB
     Indication: RHEUMATOID ARTHRITIS
     Route: 058
     Dates: start: 20070801, end: 20150902

REACTIONS (2)
  - Ischaemic stroke [Fatal]
  - Coma scale abnormal [Fatal]

NARRATIVE: CASE EVENT DATE: 20150911
